FAERS Safety Report 9248849 (Version 2)
Quarter: 2013Q2

REPORT INFORMATION
  Report Type: Report from Study
  Country: DE (occurrence: DE)
  Receive Date: 20130423
  Receipt Date: 20130426
  Transmission Date: 20140414
  Serious: Yes (Hospitalization, Other)
  Sender: FDA-Public Use
  Company Number: DE-ROCHE-1215397

PATIENT
  Age: 61 Year
  Sex: Female
  Weight: 88 kg

DRUGS (10)
  1. TOCILIZUMAB [Suspect]
     Indication: RHEUMATOID ARTHRITIS
     Route: 042
     Dates: start: 20111201
  2. NEUROTRAT FORTE [Concomitant]
     Indication: RHEUMATOID ARTHRITIS
     Route: 048
  3. LODOTRA [Concomitant]
     Indication: RHEUMATOID ARTHRITIS
     Route: 065
  4. DECORTIN [Concomitant]
     Indication: RHEUMATOID ARTHRITIS
     Route: 065
  5. VALORON [Concomitant]
     Indication: RHEUMATOID ARTHRITIS
     Route: 065
  6. RAMIPRIL [Concomitant]
     Indication: HYPERTENSION
     Route: 065
     Dates: start: 20121008
  7. LEFLUNOMID [Concomitant]
     Indication: RHEUMATOID ARTHRITIS
  8. VIGANTOLETTEN [Concomitant]
     Route: 065
  9. DECORTIN H [Concomitant]
     Indication: RHEUMATOID ARTHRITIS
     Route: 065
  10. NOCTAMID [Concomitant]
     Indication: SLEEP DISORDER
     Route: 065
     Dates: start: 2013

REACTIONS (3)
  - Osteoarthritis [Recovered/Resolved]
  - Foot fracture [Unknown]
  - Rheumatoid arthritis [Not Recovered/Not Resolved]
